FAERS Safety Report 8764480 (Version 1)
Quarter: 2012Q4

REPORT INFORMATION
  Report Type: 
  Country: US (occurrence: US)
  Receive Date: 20120831
  Receipt Date: 20120831
  Transmission Date: 20130627
  Serious: Yes (Hospitalization)
  Sender: FDA-Public Use
  Company Number: US-ACTELION-A-US2011-44175

PATIENT
  Age: 76 Year
  Sex: Female

DRUGS (3)
  1. VENTAVIS [Suspect]
     Indication: PULMONARY ARTERIAL HYPERTENSION
     Dosage: UNK
     Route: 055
     Dates: start: 20080128
  2. ADCIRCA [Concomitant]
  3. COUMADIN [Concomitant]

REACTIONS (6)
  - Knee operation [Unknown]
  - Bronchitis [Unknown]
  - Cough [Recovering/Resolving]
  - Arthralgia [Unknown]
  - Catheterisation cardiac [Unknown]
  - Wisdom teeth removal [Unknown]
